FAERS Safety Report 4989342-9 (Version None)
Quarter: 2006Q2

REPORT INFORMATION
  Report Type: 
  Country: None (occurrence: None)
  Receive Date: 20060426
  Receipt Date: 20060420
  Transmission Date: 20061013
  Serious: Yes (Death, Life-Threatening, Disabling)
  Sender: FDA-Public Use
  Company Number: 224271

PATIENT
  Age: 65 Year
  Sex: Male

DRUGS (9)
  1. ACTIVACIN (ALTEPLASE) PWDR + SOLVENT, INFUSION SOLN [Suspect]
     Indication: CEREBRAL ARTERY EMBOLISM
     Dosage: 42.4 MG, SINGLE,  INTRAVENOUS
     Route: 042
     Dates: start: 20060206
  2. RADICUT(EDARAVONE) [Suspect]
     Indication: CEREBRAL ARTERY EMBOLISM
     Dosage: 60 MG, INTRAVENOUS
     Route: 042
     Dates: start: 20060206, end: 20060208
  3. ISOZOL(THIAMYLAL SODIUM) [Suspect]
     Indication: CEREBRAL ARTERY EMBOLISM
     Dosage: 1500 MG, INTRAVENOUS
     Route: 042
     Dates: start: 20060208, end: 20060210
  4. WARFARIN SODIUM [Concomitant]
  5. PRIMPERAN ELIXIR [Concomitant]
  6. GLYCEOL (GLYCERIN) [Concomitant]
  7. MANNITOL [Concomitant]
  8. CEFAZOLIN SODIUM [Concomitant]
  9. DOPAMINE HYDROCHLORIDE [Concomitant]

REACTIONS (9)
  - ALANINE AMINOTRANSFERASE INCREASED [None]
  - ARTERIAL HAEMORRHAGE [None]
  - ASPARTATE AMINOTRANSFERASE INCREASED [None]
  - BLOOD UREA INCREASED [None]
  - BRAIN HERNIATION [None]
  - BRAIN OEDEMA [None]
  - HAEMORRHAGIC CEREBRAL INFARCTION [None]
  - LIVER DISORDER [None]
  - RENAL DISORDER [None]
